FAERS Safety Report 9629590 (Version 1)
Quarter: 2013Q4

REPORT INFORMATION
  Report Type: Spontaneous
  Country: US (occurrence: US)
  Receive Date: 20131017
  Receipt Date: 20131017
  Transmission Date: 20140711
  Serious: No
  Sender: FDA-Public Use
  Company Number: US-009507513-1310USA007250

PATIENT
  Age: 21 Year
  Sex: Female
  Weight: 97.52 kg

DRUGS (1)
  1. NEXPLANON [Suspect]
     Dosage: UNK
     Route: 059
     Dates: start: 20130813

REACTIONS (2)
  - Pruritus [Not Recovered/Not Resolved]
  - Implant site pruritus [Not Recovered/Not Resolved]
